FAERS Safety Report 24624382 (Version 1)
Quarter: 2024Q4

REPORT INFORMATION
  Report Type: Spontaneous
  Country: US (occurrence: None)
  Receive Date: 20241114
  Receipt Date: 20241114
  Transmission Date: 20250115
  Serious: Yes (Hospitalization)
  Sender: Public
  Company Number: None

PATIENT
  Age: 27 Year
  Sex: Male
  Weight: 117 kg

DRUGS (1)
  1. WEGOVY [Suspect]
     Active Substance: SEMAGLUTIDE
     Indication: Weight decreased
     Dates: start: 20240303, end: 20240317

REACTIONS (8)
  - Syncope [None]
  - Fall [None]
  - Face injury [None]
  - Contusion [None]
  - Bone contusion [None]
  - Tunnel vision [None]
  - Cold sweat [None]
  - Cardio-respiratory arrest [None]

NARRATIVE: CASE EVENT DATE: 20240306
